FAERS Safety Report 18611075 (Version 1)
Quarter: 2020Q4

REPORT INFORMATION
  Report Type: Spontaneous
  Country: US (occurrence: US)
  Receive Date: 20201214
  Receipt Date: 20201214
  Transmission Date: 20210114
  Serious: No
  Sender: FDA-Public Use
  Company Number: US-PFIZER INC-2019181543

PATIENT
  Age: 79 Year
  Sex: Female

DRUGS (2)
  1. PROVERA [Suspect]
     Active Substance: MEDROXYPROGESTERONE ACETATE
     Dosage: 5 MG, UNK
  2. PROVERA [Suspect]
     Active Substance: MEDROXYPROGESTERONE ACETATE
     Dosage: 5 MG, UNK

REACTIONS (3)
  - Off label use [Unknown]
  - Eczema [Unknown]
  - Hypersensitivity [Unknown]
